FAERS Safety Report 24993898 (Version 1)
Quarter: 2025Q1

REPORT INFORMATION
  Report Type: Spontaneous
  Country: GB (occurrence: GB)
  Receive Date: 20250221
  Receipt Date: 20250221
  Transmission Date: 20250409
  Serious: Yes (Death, Other)
  Sender: EXELIXIS
  Company Number: GB-IPSEN Group, Research and Development-2022-26667

PATIENT
  Age: 29 Year
  Sex: Female
  Weight: 87.5 kg

DRUGS (6)
  1. CABOMETYX [Suspect]
     Active Substance: CABOZANTINIB S-MALATE
     Indication: Synovial sarcoma metastatic
     Dosage: 40 MG, QD
     Route: 048
     Dates: start: 20221003, end: 20221027
  2. CABOMETYX [Suspect]
     Active Substance: CABOZANTINIB S-MALATE
     Indication: Off label use
     Route: 065
     Dates: end: 20230317
  3. APIXABAN [Concomitant]
     Active Substance: APIXABAN
  4. TENOFOVIR [Concomitant]
     Active Substance: TENOFOVIR
  5. LANSOPRAZOLE [Concomitant]
     Active Substance: LANSOPRAZOLE
  6. MORPHINE SULFATE [Concomitant]
     Active Substance: MORPHINE SULFATE

REACTIONS (6)
  - Death [Fatal]
  - Malignant neoplasm progression [Unknown]
  - Alanine aminotransferase increased [Recovering/Resolving]
  - Abdominal pain [Unknown]
  - Muscle spasms [Unknown]
  - Off label use [Unknown]

NARRATIVE: CASE EVENT DATE: 20221001
